FAERS Safety Report 9259987 (Version 1)
Quarter: 2013Q2

REPORT INFORMATION
  Report Type: Spontaneous
  Country: US (occurrence: US)
  Receive Date: 20130429
  Receipt Date: 20130429
  Transmission Date: 20140414
  Serious: Yes (Hospitalization)
  Sender: FDA-Public Use
  Company Number: US-BAYER-2013-050801

PATIENT
  Age: 20 Year
  Sex: Female

DRUGS (3)
  1. YAZ [Suspect]
  2. VICODIN [Concomitant]
     Indication: PAIN
     Dosage: 1-2 EVERY, 6 HOURS, AS NEEDED
  3. AUGMENTIN [Concomitant]
     Dosage: 1 DF, TID
     Route: 048

REACTIONS (1)
  - Cholecystitis [None]
